FAERS Safety Report 16499771 (Version 1)
Quarter: 2019Q3

REPORT INFORMATION
  Report Type: Report from Study
  Country: GB (occurrence: GB)
  Receive Date: 20190701
  Receipt Date: 20190701
  Transmission Date: 20191004
  Serious: Yes (Other)
  Sender: FDA-Public Use
  Company Number: GB-ACCORD-135302

PATIENT
  Sex: Female

DRUGS (1)
  1. LEVETIRACETAM. [Suspect]
     Active Substance: LEVETIRACETAM
     Indication: SEIZURE

REACTIONS (6)
  - Suicidal ideation [Unknown]
  - Maternal exposure during pregnancy [Unknown]
  - Anger [Unknown]
  - Depression [Unknown]
  - Twin pregnancy [Unknown]
  - Maternal exposure during breast feeding [Unknown]
